FAERS Safety Report 13550517 (Version 1)
Quarter: 2017Q2

REPORT INFORMATION
  Report Type: Spontaneous
  Country: US (occurrence: US)
  Receive Date: 20170516
  Receipt Date: 20170516
  Transmission Date: 20170830
  Serious: Yes (Hospitalization)
  Sender: FDA-Public Use
  Company Number: None

PATIENT
  Sex: Female
  Weight: 47 kg

DRUGS (4)
  1. ZEPATIER [Suspect]
     Active Substance: ELBASVIR\GRAZOPREVIR
     Dosage: 50MG/100MG DAILY P.O.
     Route: 048
     Dates: start: 20160109, end: 20170428
  2. FRASUBIN [Concomitant]
  3. FORMOTEROL [Concomitant]
     Active Substance: FORMOTEROL
  4. TIATROPIUMBROMID [Concomitant]

REACTIONS (5)
  - Tachycardia [None]
  - Cough [None]
  - Dyspnoea exertional [None]
  - Chronic obstructive pulmonary disease [None]
  - Purulent discharge [None]

NARRATIVE: CASE EVENT DATE: 20170301
